FAERS Safety Report 25089604 (Version 6)
Quarter: 2025Q2

REPORT INFORMATION
  Report Type: Spontaneous
  Country: DE (occurrence: DE)
  Receive Date: 20250318
  Receipt Date: 20250626
  Transmission Date: 20250716
  Serious: Yes (Hospitalization, Other)
  Sender: BAUSCH AND LOMB
  Company Number: DE-002147023-PHHY2018DE061478

PATIENT
  Age: 82 Year
  Sex: Female
  Weight: 56 kg

DRUGS (78)
  1. DICLOFENAC SODIUM [Suspect]
     Active Substance: DICLOFENAC SODIUM
     Indication: Product used for unknown indication
     Dosage: 2 DOSAGE FORM, QD
     Route: 065
     Dates: start: 201610, end: 201610
  2. DICLOFENAC [Suspect]
     Active Substance: DICLOFENAC
     Indication: Product used for unknown indication
     Route: 065
  3. DICLOFENAC [Suspect]
     Active Substance: DICLOFENAC
     Dosage: 2 DOSAGE FORM, QD
     Route: 065
     Dates: start: 201610
  4. VALSARTAN [Suspect]
     Active Substance: VALSARTAN
     Indication: Product used for unknown indication
     Route: 065
  5. DICLOFENAC [Suspect]
     Active Substance: DICLOFENAC
     Indication: Product used for unknown indication
     Dosage: 2 DF, QD
     Route: 065
     Dates: start: 201610, end: 201610
  6. DICLOFENAC [Suspect]
     Active Substance: DICLOFENAC
     Dosage: UNK UNK, QD
     Route: 065
     Dates: start: 201610, end: 201610
  7. DICLOFENAC [Suspect]
     Active Substance: DICLOFENAC
     Route: 065
  8. DICLOFENAC [Suspect]
     Active Substance: DICLOFENAC
     Route: 065
  9. BISOPROLOL FUMARATE [Suspect]
     Active Substance: BISOPROLOL FUMARATE
     Indication: Product used for unknown indication
     Dosage: 5 MG, QD
     Route: 065
     Dates: start: 2016
  10. BISOPROLOL FUMARATE [Suspect]
     Active Substance: BISOPROLOL FUMARATE
     Dosage: 0.5 MG, QD; 03 TIMES ADMINISTERED
     Route: 065
     Dates: start: 2016
  11. PANTOPRAZOLE SODIUM [Suspect]
     Active Substance: PANTOPRAZOLE SODIUM
     Indication: Product used for unknown indication
     Dosage: 20 MG, QD
     Route: 065
  12. PANTOPRAZOLE SODIUM [Suspect]
     Active Substance: PANTOPRAZOLE SODIUM
     Route: 065
  13. PANTOPRAZOLE SODIUM [Suspect]
     Active Substance: PANTOPRAZOLE SODIUM
     Route: 065
  14. FENTANYL TRANSDERMAL SYSTEM [Suspect]
     Active Substance: FENTANYL
     Indication: Product used for unknown indication
     Dosage: 75 UG 1HR (75 MICROGRAM/HOUR AND PLASTER CHANGE EVERY 3 DAYS)
     Route: 062
  15. AMIODARONE [Suspect]
     Active Substance: AMIODARONE
     Indication: Product used for unknown indication
     Route: 065
  16. SIMVASTATIN [Suspect]
     Active Substance: SIMVASTATIN
     Indication: Product used for unknown indication
     Route: 065
  17. ASPIRIN [Suspect]
     Active Substance: ASPIRIN
     Indication: Product used for unknown indication
     Route: 065
  18. CLOPIDOGREL [Suspect]
     Active Substance: CLOPIDOGREL BISULFATE
     Indication: Product used for unknown indication
     Route: 048
     Dates: start: 20170124, end: 20170124
  19. FENTANYL [Suspect]
     Active Substance: FENTANYL
     Indication: Product used for unknown indication
     Dosage: 75 MICROGRAM/HOUR AND PLASTER CHANGE EVERY 3 DAYS
     Route: 062
  20. HYDROCHLOROTHIAZIDE\LOSARTAN [Suspect]
     Active Substance: HYDROCHLOROTHIAZIDE\LOSARTAN
     Indication: Product used for unknown indication
     Dosage: 1 DOSAGE FORM, QD (100/25 MG)
     Route: 065
     Dates: start: 2016
  21. METOPROLOL SUCCINATE [Suspect]
     Active Substance: METOPROLOL SUCCINATE
     Indication: Product used for unknown indication
     Route: 065
     Dates: start: 20170124, end: 20170124
  22. TORSEMIDE [Suspect]
     Active Substance: TORSEMIDE
     Indication: Product used for unknown indication
     Dosage: 5 MG,
     Route: 065
  23. TORSEMIDE [Suspect]
     Active Substance: TORSEMIDE
     Route: 065
     Dates: start: 20170124, end: 20170124
  24. TORSEMIDE [Suspect]
     Active Substance: TORSEMIDE
     Dosage: 5 MG, QD
     Route: 065
     Dates: start: 20170124, end: 20170124
  25. TORSEMIDE [Suspect]
     Active Substance: TORSEMIDE
     Dosage: 15 MG, QD
     Route: 065
     Dates: start: 20170124, end: 20170124
  26. TORSEMIDE [Suspect]
     Active Substance: TORSEMIDE
     Route: 065
  27. TROSPIUM CHLORIDE [Suspect]
     Active Substance: TROSPIUM CHLORIDE
     Indication: Product used for unknown indication
     Route: 065
     Dates: start: 20170124
  28. TROSPIUM CHLORIDE [Suspect]
     Active Substance: TROSPIUM CHLORIDE
     Dosage: 15 MG, QD
     Dates: start: 20170124
  29. CLOPIDOGREL BISULFATE [Suspect]
     Active Substance: CLOPIDOGREL BISULFATE
     Indication: Product used for unknown indication
     Route: 048
     Dates: start: 20170124, end: 20170124
  30. PREDNISOLONE [Suspect]
     Active Substance: PREDNISOLONE
     Indication: Product used for unknown indication
     Route: 065
  31. XIPAMIDE [Suspect]
     Active Substance: XIPAMIDE
     Indication: Product used for unknown indication
     Route: 065
     Dates: start: 20170124, end: 20170124
  32. EDOXABAN TOSYLATE [Suspect]
     Active Substance: EDOXABAN TOSYLATE
     Indication: Atrial fibrillation
     Dosage: 30 MG, QD
     Route: 065
     Dates: start: 20160930
  33. PHLOROGLUCINOL [Suspect]
     Active Substance: PHLOROGLUCINOL
     Indication: Product used for unknown indication
     Dosage: 45 MG, QD
     Route: 065
     Dates: start: 20170124, end: 20170124
  34. PHLOROGLUCINOL [Suspect]
     Active Substance: PHLOROGLUCINOL
     Indication: Product used for unknown indication
     Dosage: 15 MG, QD
     Route: 065
     Dates: start: 20170124, end: 20170124
  35. PHLOROGLUCINOL [Suspect]
     Active Substance: PHLOROGLUCINOL
     Dosage: 15 MG, QD
     Route: 065
  36. PHLOROGLUCINOL [Suspect]
     Active Substance: PHLOROGLUCINOL
     Route: 065
  37. HUMIRA [Suspect]
     Active Substance: ADALIMUMAB
     Indication: Rheumatoid arthritis
     Dosage: 2 DOSAGE FORM, BIW
     Route: 058
     Dates: start: 20120111, end: 20160927
  38. HUMIRA [Suspect]
     Active Substance: ADALIMUMAB
     Dosage: 1 DOSAGE FORM, Q2W
     Route: 058
     Dates: start: 20160927
  39. HUMIRA [Suspect]
     Active Substance: ADALIMUMAB
     Dosage: 1 DOSAGE FORM, BIW
     Route: 058
     Dates: start: 20161115
  40. HUMIRA [Suspect]
     Active Substance: ADALIMUMAB
     Dosage: UNK, QW
     Route: 058
     Dates: start: 20120411, end: 20160927
  41. HUMIRA [Suspect]
     Active Substance: ADALIMUMAB
     Dosage: UNK, QW
     Route: 058
     Dates: start: 20161115
  42. HUMIRA [Suspect]
     Active Substance: ADALIMUMAB
     Dosage: 40 MG, QW
     Route: 058
     Dates: start: 20120111
  43. HUMIRA [Suspect]
     Active Substance: ADALIMUMAB
     Route: 058
     Dates: start: 20120411, end: 20160927
  44. HUMIRA [Suspect]
     Active Substance: ADALIMUMAB
     Dosage: 40 MG, QW
     Route: 058
     Dates: start: 20120111
  45. HUMIRA [Suspect]
     Active Substance: ADALIMUMAB
     Dosage: 40 MG, QW
     Route: 058
     Dates: start: 20120111
  46. HUMIRA [Suspect]
     Active Substance: ADALIMUMAB
     Dosage: 40 MG, QW
     Route: 058
     Dates: start: 20161115
  47. CHOLECALCIFEROL [Suspect]
     Active Substance: CHOLECALCIFEROL
     Indication: Product used for unknown indication
     Dosage: 20000 IU, QW (DAILY DOSE: 20000 IU INTERNATIONAL UNIT(S) EVERY WEEKS)
     Route: 065
  48. MOVICOL [Suspect]
     Active Substance: POLYETHYLENE GLYCOL 3350\POTASSIUM CHLORIDE\SODIUM BICARBONATE\SODIUM CHLORIDE
     Indication: Product used for unknown indication
     Route: 065
     Dates: start: 20170124
  49. XIPAMIDE [Suspect]
     Active Substance: XIPAMIDE
     Indication: Product used for unknown indication
     Route: 065
     Dates: start: 20170124, end: 20170124
  50. FUROSEMIDE\SPIRONOLACTONE [Suspect]
     Active Substance: FUROSEMIDE\SPIRONOLACTONE
     Indication: Product used for unknown indication
     Dosage: 1 DF, QD, 1X/DAY, 50MG/20MG
     Route: 065
     Dates: start: 201610
  51. FUROSEMIDE\SPIRONOLACTONE [Suspect]
     Active Substance: FUROSEMIDE\SPIRONOLACTONE
     Route: 065
     Dates: start: 201610, end: 201610
  52. LACTULOSE [Suspect]
     Active Substance: LACTULOSE
     Indication: Product used for unknown indication
     Route: 065
     Dates: start: 20170124, end: 20170124
  53. HYDROCHLOROTHIAZIDE\LOSARTAN POTASSIUM [Suspect]
     Active Substance: HYDROCHLOROTHIAZIDE\LOSARTAN POTASSIUM
     Indication: Product used for unknown indication
     Dosage: 100/25 MG
     Route: 065
     Dates: start: 2016
  54. LOSARTAN POTASSIUM [Suspect]
     Active Substance: LOSARTAN POTASSIUM
     Indication: Product used for unknown indication
     Dosage: 1 DOSAGE FORM, QD
     Route: 065
     Dates: start: 2016
  55. LOSARTAN [Suspect]
     Active Substance: LOSARTAN
     Indication: Product used for unknown indication
     Dosage: 1 DF, QD, DAILY
     Route: 065
     Dates: start: 2016
  56. CLOPIDOGREL [Suspect]
     Active Substance: CLOPIDOGREL BISULFATE
     Indication: Product used for unknown indication
     Route: 048
     Dates: start: 20170124, end: 20170124
  57. TROSPIUM CHLORIDE [Suspect]
     Active Substance: TROSPIUM CHLORIDE
     Indication: Product used for unknown indication
     Route: 065
  58. TROSPIUM CHLORIDE [Suspect]
     Active Substance: TROSPIUM CHLORIDE
     Dosage: 45 MG, QD, DAILY
     Route: 065
     Dates: start: 20170124, end: 20170124
  59. TROSPIUM CHLORIDE [Suspect]
     Active Substance: TROSPIUM CHLORIDE
     Dosage: 15 MG, QD
     Route: 065
     Dates: start: 20170124, end: 20170124
  60. TORSEMIDE [Suspect]
     Active Substance: TORSEMIDE
     Indication: Product used for unknown indication
     Dosage: 5 MG, QD
     Route: 065
  61. TORSEMIDE [Suspect]
     Active Substance: TORSEMIDE
     Route: 065
  62. RIOPAN [Concomitant]
     Indication: Product used for unknown indication
     Route: 048
  63. RIOPAN [Concomitant]
     Dosage: 1600 MG, QD
     Route: 048
  64. RIOPAN [Concomitant]
     Route: 065
  65. CORDAREX [Concomitant]
     Active Substance: AMIODARONE
     Indication: Product used for unknown indication
     Dosage: 200 MG, QD
     Route: 065
  66. CORDAREX [Concomitant]
     Active Substance: AMIODARONE
     Route: 065
  67. ENOXAPARIN [Concomitant]
     Active Substance: ENOXAPARIN
     Indication: Product used for unknown indication
     Dosage: 0.6 MG, QD
     Route: 065
  68. ENOXAPARIN [Concomitant]
     Active Substance: ENOXAPARIN
     Dosage: 5 MG, QD
     Route: 065
     Dates: start: 2016
  69. ENOXAPARIN [Concomitant]
     Active Substance: ENOXAPARIN
     Route: 065
  70. FOLIC ACID [Concomitant]
     Active Substance: FOLIC ACID
     Indication: Product used for unknown indication
     Route: 065
     Dates: start: 20170124
  71. FOLIC ACID [Concomitant]
     Active Substance: FOLIC ACID
     Route: 065
  72. NADROPARIN CALCIUM [Concomitant]
     Active Substance: NADROPARIN CALCIUM
     Indication: Product used for unknown indication
     Dosage: DAILY DOSE: 5700 IU INTERNATIONAL UNIT(S) EVERY DAYS
     Route: 058
  73. NADROPARIN CALCIUM [Concomitant]
     Active Substance: NADROPARIN CALCIUM
     Route: 065
  74. LEVOSIMENDAN [Concomitant]
     Active Substance: LEVOSIMENDAN
     Indication: Product used for unknown indication
     Route: 065
     Dates: start: 201611, end: 201611
  75. LEVOSIMENDAN [Concomitant]
     Active Substance: LEVOSIMENDAN
     Route: 065
  76. SODIUM CHLORIDE [Concomitant]
     Active Substance: SODIUM CHLORIDE
     Indication: Product used for unknown indication
     Dosage: 1 DF, QD
     Route: 065
  77. SODIUM CHLORIDE [Concomitant]
     Active Substance: SODIUM CHLORIDE
     Dosage: 3 DOSAGE FORM, QD
     Route: 065
  78. SODIUM CHLORIDE [Concomitant]
     Active Substance: SODIUM CHLORIDE
     Route: 065

REACTIONS (57)
  - Joint dislocation [Recovered/Resolved]
  - Anuria [Recovered/Resolved]
  - Urinary retention [Recovered/Resolved]
  - Wound dehiscence [Recovered/Resolved]
  - Osteopenia [Recovered/Resolved]
  - Arterial haemorrhage [Recovered/Resolved]
  - Pancreatic steatosis [Unknown]
  - Myelodysplastic syndrome [Unknown]
  - Haemarthrosis [Unknown]
  - Tricuspid valve incompetence [Unknown]
  - Aortic valve stenosis [Unknown]
  - Hyponatraemia [Unknown]
  - Impaired healing [Recovered/Resolved]
  - Aortic arteriosclerosis [Unknown]
  - General physical health deterioration [Unknown]
  - Peripheral swelling [Recovered/Resolved]
  - Diverticulum intestinal [Recovering/Resolving]
  - Groin pain [Not Recovered/Not Resolved]
  - Fall [Recovered/Resolved]
  - Syncope [Unknown]
  - Gait disturbance [Unknown]
  - Faecaloma [Unknown]
  - Mitral valve incompetence [Unknown]
  - Cardiovascular disorder [Unknown]
  - Hepatic cyst [Unknown]
  - Acute kidney injury [Unknown]
  - Haematuria [Recovering/Resolving]
  - Abdominal discomfort [Unknown]
  - Femoral hernia incarcerated [Recovered/Resolved]
  - Coronary artery disease [Unknown]
  - Lymphatic fistula [Recovered/Resolved]
  - Left ventricular dysfunction [Recovered/Resolved]
  - Inflammatory marker increased [Recovered/Resolved]
  - Arthralgia [Unknown]
  - Seroma [Unknown]
  - Pulmonary hypertension [Recovering/Resolving]
  - Cardiogenic shock [Unknown]
  - Hiatus hernia [Unknown]
  - Gait disturbance [Recovering/Resolving]
  - Diverticulum intestinal [Unknown]
  - Anaemia [Recovered/Resolved]
  - Urinary tract infection [Recovering/Resolving]
  - Aplastic anaemia [Unknown]
  - Oedema peripheral [Unknown]
  - Wound infection pseudomonas [Recovering/Resolving]
  - Myocardial infarction [Recovered/Resolved]
  - Hyperkalaemia [Unknown]
  - Dyspnoea [Unknown]
  - Postoperative wound infection [Recovered/Resolved]
  - Escherichia infection [Unknown]
  - Eructation [Unknown]
  - Decreased appetite [Unknown]
  - Dyspepsia [Unknown]
  - Vomiting [Unknown]
  - Tachyarrhythmia [Unknown]
  - Gastrointestinal haemorrhage [Recovered/Resolved]
  - Joint dislocation [Recovered/Resolved]

NARRATIVE: CASE EVENT DATE: 20160101
